FAERS Safety Report 17553507 (Version 1)
Quarter: 2020Q1

REPORT INFORMATION
  Report Type: Spontaneous
  Country: US (occurrence: US)
  Receive Date: 20200318
  Receipt Date: 20200318
  Transmission Date: 20200409
  Serious: Yes (Other)
  Sender: FDA-Public Use
  Company Number: US-TEVA-2020-US-1207540

PATIENT
  Age: 51 Year
  Sex: Female

DRUGS (20)
  1. FENOFIBRATE ORAL TABLET 145MG [Concomitant]
     Route: 048
  2. FLUTICASONE PROPIONATE NASAL SUSPENSION 50MCG/ACT [Concomitant]
  3. LITHIUM CARBONATE ORAL CAPSULE 150MG [Concomitant]
     Route: 048
  4. AUSTEDO [Suspect]
     Active Substance: DEUTETRABENAZINE
     Indication: TARDIVE DYSKINESIA
     Dosage: 18 MILLIGRAM DAILY;
     Route: 048
     Dates: start: 20200131, end: 20200206
  5. GABAPENTIN ORAL TABLET 600MG [Concomitant]
     Route: 048
  6. FLUOXETINE HCL (PMDD) ORAL CAPSULE 10MG [Concomitant]
     Route: 048
  7. JARDIANCE ORAL TABLET 25MG [Concomitant]
     Route: 048
  8. BREO ELLIPTA INHALATION AEROSOL POWDER BREATH ACTIVATED 200-25MCG [Concomitant]
  9. SEROQUEL ORAL TABLET 100MG [Concomitant]
     Route: 048
  10. PERCOCET ORAL TABLET 7.5-325MG [Concomitant]
     Route: 048
  11. PANTOPRAZOLE SODIUM ORAL TABLET DELAYED RELEASE 40MG [Concomitant]
     Route: 048
  12. LISINOPRIL ORAL TABLET 40MG [Concomitant]
     Route: 048
  13. POLYETHYLENE GLYCOL 3350 POWDER [Concomitant]
     Active Substance: POLYETHYLENE GLYCOL 3350
  14. ATORVASTATIN CALCIUM ORAL TABLET 40MG [Concomitant]
     Route: 048
  15. AUSTEDO [Suspect]
     Active Substance: DEUTETRABENAZINE
     Dosage: 24 MILLIGRAM DAILY;
     Route: 048
     Dates: start: 20200207, end: 20200227
  16. CELECOXIB ORAL CAPSULE 200MG [Concomitant]
     Route: 048
  17. METFORMIN HCL ORAL TABLET 1000MG [Concomitant]
     Route: 048
  18. DIAZEPAM ORAL TABLET 5MG [Concomitant]
     Route: 048
  19. CLOTRIMAZOLE BETAMETHASONE EXTERNAL CREAM 1-0.005% [Concomitant]
  20. LATUDA ORAL TABLET 60MG [Concomitant]
     Route: 048

REACTIONS (4)
  - Irritability [Recovered/Resolved]
  - Mood altered [Recovered/Resolved]
  - Dyskinesia [Recovered/Resolved]
  - Dry mouth [Recovered/Resolved]

NARRATIVE: CASE EVENT DATE: 2020
